FAERS Safety Report 6370802-3 (Version None)
Quarter: 2009Q3

REPORT INFORMATION
  Report Type: 
  Country: None (occurrence: None)
  Receive Date: 20090923
  Receipt Date: 20080305
  Transmission Date: 20100115
  Serious: No
  Sender: FDA-Public Use
  Company Number: US-ASTRAZENECA-2006UW24950

PATIENT
  Age: 13788 Day
  Sex: Male
  Weight: 88.5 kg

DRUGS (11)
  1. SEROQUEL [Suspect]
     Indication: DEPRESSION
     Dosage: 100 - 300MG
     Route: 048
     Dates: start: 19970101, end: 20050101
  2. SEROQUEL [Suspect]
     Indication: BIPOLAR DISORDER
     Dosage: 100 - 300MG
     Route: 048
     Dates: start: 19970101, end: 20050101
  3. SEROQUEL [Suspect]
     Dosage: 100-800MG
     Route: 048
     Dates: start: 20021206
  4. SEROQUEL [Suspect]
     Dosage: 100-800MG
     Route: 048
     Dates: start: 20021206
  5. ZOLOFT [Concomitant]
     Route: 048
     Dates: start: 20040817
  6. PRILOSEC [Concomitant]
     Dates: start: 20051023
  7. PROZAC [Concomitant]
     Route: 048
     Dates: start: 20041227
  8. IBUPROFEN [Concomitant]
     Dates: start: 20030603
  9. ACETAMINOPHEN [Concomitant]
     Dates: start: 20060130
  10. CHLORPHENIRAMINE MALEATE [Concomitant]
     Dates: start: 20071022
  11. AZITHROMYCIN [Concomitant]
     Dosage: 150-250 MG
     Dates: start: 20071022

REACTIONS (6)
  - AFFECTIVE DISORDER [None]
  - ANXIETY [None]
  - DIABETES MELLITUS [None]
  - HEADACHE [None]
  - PULPITIS DENTAL [None]
  - TACHYPHRENIA [None]
